FAERS Safety Report 18339241 (Version 1)
Quarter: 2020Q4

REPORT INFORMATION
  Report Type: Spontaneous
  Country: US (occurrence: US)
  Receive Date: 20201002
  Receipt Date: 20201002
  Transmission Date: 20210113
  Serious: No
  Sender: FDA-Public Use
  Company Number: US-PFIZER INC-2020378968

PATIENT
  Age: 68 Year
  Sex: Female
  Weight: 83.91 kg

DRUGS (1)
  1. PREMARIN [Suspect]
     Active Substance: ESTROGENS, CONJUGATED
     Dosage: UNK (SHE UPPED HER DOSE FROM 0.3- 0.45)

REACTIONS (2)
  - Drug ineffective [Unknown]
  - Intentional product use issue [Unknown]
